FAERS Safety Report 6527879-1 (Version None)
Quarter: 2009Q4

REPORT INFORMATION
  Report Type: 
  Country: None (occurrence: None)
  Receive Date: 20091231
  Receipt Date: 20091217
  Transmission Date: 20100525
  Serious: Yes (Death, Life-Threatening)
  Sender: FDA-Public Use
  Company Number: 21323

PATIENT
  Age: 72 Year
  Sex: Male

DRUGS (24)
  1. ESCITALOPRAM OXALATE [Suspect]
     Dosage: 10 MG (10 MG, 1 IN 1 D), ORAL
     Route: 048
     Dates: start: 20070917, end: 20070917
  2. ESCITALOPRAM OXALATE [Suspect]
     Dosage: 10 MG (10 MG, 1 IN 1 D), ORAL
     Route: 048
     Dates: start: 20070918
  3. CLOMIPRAMINE HCL [Concomitant]
  4. GODAMED [Concomitant]
  5. NACOM [Concomitant]
  6. NACOM RETARD [Concomitant]
  7. PANTOPRAZOLE [Concomitant]
  8. REQUIP [Concomitant]
  9. STILNOX [Concomitant]
  10. TRAZODONE HCL [Concomitant]
  11. TORSEMIDE [Concomitant]
  12. XIMOVAN [Concomitant]
  13. ATOSIL [Concomitant]
  14. TERAZOSIN HCL [Concomitant]
  15. CEFIXIM [Concomitant]
  16. SIMVAHEXAL [Concomitant]
  17. LYRICA [Concomitant]
  18. MOTILIUM [Concomitant]
  19. TAVOR [Concomitant]
  20. SEROQUEL [Concomitant]
  21. SIMETHICON [Concomitant]
  22. IBUPROFEN [Concomitant]
  23. AMITRIPTYLINE HCL [Concomitant]
  24. CYMBALTA [Concomitant]

REACTIONS (2)
  - COMPLETED SUICIDE [None]
  - DROWNING [None]
